FAERS Safety Report 9961187 (Version 1)
Quarter: 2014Q1

REPORT INFORMATION
  Report Type: Report from Study
  Country: US (occurrence: US)
  Receive Date: 20140305
  Receipt Date: 20140305
  Transmission Date: 20141002
  Serious: Yes (Hospitalization)
  Sender: FDA-Public Use
  Company Number: PHEH2014US004088

PATIENT
  Sex: Male

DRUGS (1)
  1. ILARIS [Suspect]
     Dosage: 150 MG, EVERY 8 WEEKS

REACTIONS (1)
  - Infection [Unknown]
